FAERS Safety Report 10444950 (Version 1)
Quarter: 2014Q3

REPORT INFORMATION
  Report Type: Spontaneous
  Country: SE (occurrence: SE)
  Receive Date: 20140910
  Receipt Date: 20140910
  Transmission Date: 20150326
  Serious: Yes (Other)
  Sender: FDA-Public Use
  Company Number: SE-ASTRAZENECA-2014SE65587

PATIENT
  Age: 62 Year
  Sex: Female

DRUGS (3)
  1. PROPOFOL. [Concomitant]
     Active Substance: PROPOFOL
     Indication: ANAESTHESIA PROCEDURE
  2. ROPIVACAINE [Suspect]
     Active Substance: ROPIVACAINE
     Indication: PROCEDURAL PAIN
     Route: 026
  3. REMIFENTANIL [Concomitant]
     Active Substance: REMIFENTANIL
     Indication: ANAESTHESIA PROCEDURE
     Route: 042

REACTIONS (3)
  - Muscle contractions involuntary [Recovered/Resolved]
  - Unresponsive to stimuli [Recovered/Resolved]
  - Nystagmus [Recovered/Resolved]
